FAERS Safety Report 14532291 (Version 4)
Quarter: 2019Q1

REPORT INFORMATION
  Report Type: Report from Study
  Country: AU (occurrence: AU)
  Receive Date: 20180214
  Receipt Date: 20190205
  Transmission Date: 20190417
  Serious: Yes (Life-Threatening, Hospitalization)
  Sender: FDA-Public Use
  Company Number: PHHO2017AU010013

PATIENT
  Age: 19 Year
  Sex: Female
  Weight: 54 kg

DRUGS (29)
  1. CICLOSPORIN [Suspect]
     Active Substance: CYCLOSPORINE
     Indication: ACUTE GRAFT VERSUS HOST DISEASE
     Dosage: 150 MG, OT
     Route: 042
     Dates: start: 20170602, end: 20170620
  2. SODIUM BICARBONATE. [Concomitant]
     Active Substance: SODIUM BICARBONATE
     Indication: PROPHYLAXIS
     Dosage: 1 % (10 MG), QID
     Route: 048
     Dates: start: 20170522
  3. PREGABALIN. [Concomitant]
     Active Substance: PREGABALIN
     Indication: VASCULAR PAIN
     Dosage: 75 MG, QD
     Route: 048
     Dates: start: 20170622
  4. ACICLOVIR [Concomitant]
     Active Substance: ACYCLOVIR
     Indication: INFECTION PROPHYLAXIS
     Dosage: 250 MG, TID
     Route: 048
     Dates: start: 20170601
  5. PIZOTIFEN [Concomitant]
     Active Substance: PIZOTYLINE
     Indication: MIGRAINE PROPHYLAXIS
     Dosage: 500 UG, QD (NOCTE)
     Route: 048
     Dates: start: 2016
  6. PROMETHAZINE [Concomitant]
     Active Substance: PROMETHAZINE\PROMETHAZINE HYDROCHLORIDE
     Indication: PROPHYLAXIS
     Dosage: 12.5 MG, PRN
     Route: 042
     Dates: start: 20170606
  7. FENTANYL. [Concomitant]
     Active Substance: FENTANYL
     Indication: VASCULAR PAIN
     Dosage: 10 UG/ML, PRN (V.A PCA)
     Route: 042
     Dates: start: 20170529
  8. PROCHLORPERAZINE. [Concomitant]
     Active Substance: PROCHLORPERAZINE
     Indication: PROPHYLAXIS OF NAUSEA AND VOMITING
     Dosage: 12.5 MG, PRN
     Route: 048
     Dates: start: 20170601
  9. HYOSCINE BUTYLBROMIDE [Concomitant]
     Active Substance: BUTYLSCOPOLAMINE
     Indication: MUSCLE SPASMS
     Dosage: 70 MG, TID
     Route: 042
     Dates: start: 20170601
  10. FUROSEMIDE. [Concomitant]
     Active Substance: FUROSEMIDE
     Indication: PROPHYLAXIS
     Dosage: 40 MG, QD
     Route: 042
     Dates: start: 20170601
  11. NYSTATIN. [Concomitant]
     Active Substance: NYSTATIN
     Indication: ORAL CANDIDIASIS
     Dosage: 1 ML, QID
     Route: 048
     Dates: start: 20170605
  12. G-CSF [Concomitant]
     Active Substance: GRANULOCYTE COLONY-STIMULATING FACTOR NOS
     Indication: PROPHYLAXIS
     Dosage: 300 MG, QD
     Route: 048
     Dates: start: 20170531
  13. PARACETAMOL [Concomitant]
     Active Substance: ACETAMINOPHEN
     Indication: VASCULAR PAIN
     Dosage: UNK
     Route: 065
  14. MEROPENEM. [Concomitant]
     Active Substance: MEROPENEM
     Indication: ENTEROBACTER SEPSIS
     Dosage: 1 G, TID
     Route: 042
     Dates: start: 20170616
  15. INC424 [Suspect]
     Active Substance: RUXOLITINIB
     Indication: ACUTE GRAFT VERSUS HOST DISEASE
     Dosage: 10 MG, BID
     Route: 048
     Dates: start: 20170602, end: 20170617
  16. BACTRIM [Concomitant]
     Active Substance: SULFAMETHOXAZOLE\TRIMETHOPRIM
     Indication: ANTIFUNGAL PROPHYLAXIS
     Dosage: 1 DF, BID (160/800 MG, MON/THUS)
     Route: 048
     Dates: start: 201703
  17. CLONIDINE. [Concomitant]
     Active Substance: CLONIDINE
     Indication: INFECTION PROPHYLAXIS
     Dosage: 25 UG, QID
     Route: 061
     Dates: start: 2017
  18. NORTRIPTYLINE [Concomitant]
     Active Substance: NORTRIPTYLINE
     Indication: SLEEP DISORDER
     Dosage: 10 MG, QD (NOCTE)
     Route: 048
     Dates: start: 20170601
  19. LIGNOCAINE [Concomitant]
     Active Substance: LIDOCAINE HYDROCHLORIDE
     Indication: PAIN PROPHYLAXIS
     Dosage: UNK T, PRN
     Route: 061
     Dates: start: 20170531
  20. HYDROCORTISONE. [Concomitant]
     Active Substance: HYDROCORTISONE
     Indication: PROPHYLAXIS
     Dosage: 150 MG, PRN
     Route: 042
     Dates: start: 20170606
  21. KETAMINE [Concomitant]
     Active Substance: KETAMINE
     Indication: PAIN PROPHYLAXIS
     Dosage: 4 MG/KG
     Route: 042
     Dates: start: 20170607
  22. FILGRASTIM [Concomitant]
     Active Substance: FILGRASTIM
     Indication: NEUTROPENIA
     Dosage: 300 UG, QD
     Route: 058
     Dates: start: 20170616
  23. PANTOPRAZOLE [Concomitant]
     Active Substance: PANTOPRAZOLE
     Indication: GASTROOESOPHAGEAL REFLUX PROPHYLAXIS
     Dosage: 40 MG, QD
     Route: 048
     Dates: start: 20170526
  24. CETIRIZINE [Concomitant]
     Active Substance: CETIRIZINE HYDROCHLORIDE
     Indication: PROPHYLAXIS
     Dosage: 10 MG, PRN
     Route: 048
     Dates: start: 20170530
  25. POSACONAZOLE [Concomitant]
     Active Substance: POSACONAZOLE
     Indication: INFECTION PROPHYLAXIS
     Dosage: 300 MG, QD
     Route: 048
     Dates: start: 201703
  26. BUPRENORPHINE. [Concomitant]
     Active Substance: BUPRENORPHINE
     Indication: PAIN PROPHYLAXIS
     Dosage: 10 UG/KG
     Route: 061
     Dates: start: 201704
  27. VITAMIN K [Concomitant]
     Active Substance: PHYTONADIONE
     Indication: PROPHYLAXIS
     Dosage: 10 MG, UNK (M/W/F)
     Route: 042
     Dates: start: 20170529
  28. MYCOPHENOLATE MOFETIL. [Concomitant]
     Active Substance: MYCOPHENOLATE MOFETIL
     Indication: ACUTE GRAFT VERSUS HOST DISEASE
     Dosage: 150 MG, TID
     Route: 042
     Dates: start: 20170529
  29. ONDANSETRON [Concomitant]
     Active Substance: ONDANSETRON
     Indication: PROPHYLAXIS OF NAUSEA AND VOMITING
     Dosage: 8 MG, TID
     Route: 048
     Dates: start: 20170525

REACTIONS (1)
  - Microangiopathy [Not Recovered/Not Resolved]

NARRATIVE: CASE EVENT DATE: 20170619
